FAERS Safety Report 9910165 (Version 2)
Quarter: 2014Q1

REPORT INFORMATION
  Report Type: Spontaneous
  Country: US (occurrence: None)
  Receive Date: 20140212
  Receipt Date: 20140224
  Transmission Date: 20141002
  Serious: Yes (Hospitalization)
  Sender: FDA-Public Use
  Company Number: AUR-APL-2014-01391

PATIENT
  Age: 64 Year
  Sex: Male
  Weight: 91.61 kg

DRUGS (8)
  1. LISINOPRIL [Suspect]
     Indication: HYPERTENSION
     Route: 048
     Dates: start: 2011, end: 20140105
  2. NEXIUM (ESOMEPRAZOLE MAGNESIUM) [Concomitant]
  3. DILTIAZEM (DILTIAZEM) [Concomitant]
  4. METOPROLOL (METOPROLOL) [Concomitant]
  5. ASPIRIN (ACETYSALICYLIC ACID) [Concomitant]
  6. PLAVIX (CLOPIDOGREL BISULFATE) (CLOPIDOGREL BISULFATE) [Concomitant]
  7. ATORVASTATIN (ATORVASTATIN) [Concomitant]
  8. FISH OIL (FISH OIL) [Concomitant]

REACTIONS (3)
  - Bile duct stone [None]
  - Cholelithiasis [None]
  - Renal failure acute [None]
